FAERS Safety Report 7643100-5 (Version None)
Quarter: 2011Q3

REPORT INFORMATION
  Report Type: 
  Country: None (occurrence: None)
  Receive Date: 20110728
  Receipt Date: 20110719
  Transmission Date: 20111222
  Serious: Yes (Hospitalization)
  Sender: FDA-Public Use
  Company Number: US-ASTRAZENECA-2011SE17565

PATIENT
  Age: 45 Year
  Sex: Female
  Weight: 165.1 kg

DRUGS (7)
  1. RANEXA [Concomitant]
  2. TOPROL-XL [Suspect]
     Route: 048
  3. PLAVIX [Concomitant]
  4. ASPIRIN [Concomitant]
  5. TOPROL-XL [Suspect]
     Dosage: TWO TIMES A DAY
     Route: 048
  6. IMDUR [Concomitant]
     Route: 048
  7. CELEXA [Concomitant]

REACTIONS (3)
  - ATRIOVENTRICULAR BLOCK [None]
  - ANGINA PECTORIS [None]
  - MYOCARDIAL OEDEMA [None]
